FAERS Safety Report 14464814 (Version 2)
Quarter: 2019Q1

REPORT INFORMATION
  Report Type: Other
  Country: US (occurrence: US)
  Receive Date: 20180130
  Receipt Date: 20190126
  Transmission Date: 20190417
  Serious: No
  Sender: FDA-Public Use
  Company Number: US-ACORDA-ACO_135456_2017

PATIENT
  Age: 55 Year
  Sex: Female

DRUGS (5)
  1. AMPYRA [Suspect]
     Active Substance: DALFAMPRIDINE
     Indication: MULTIPLE SCLEROSIS
     Dosage: 10 MG, BID
     Route: 048
     Dates: start: 20100928
  2. AMPYRA [Suspect]
     Active Substance: DALFAMPRIDINE
     Dosage: 10 MG, BID
     Route: 048
  3. AMPYRA [Suspect]
     Active Substance: DALFAMPRIDINE
     Dosage: 10 MG, BID
     Route: 048
  4. AMPYRA [Suspect]
     Active Substance: DALFAMPRIDINE
     Dosage: 10 MG, BID
     Route: 048
  5. RITUXAN [Concomitant]
     Active Substance: RITUXIMAB
     Indication: PRODUCT USED FOR UNKNOWN INDICATION
     Route: 065

REACTIONS (13)
  - Urinary tract infection [Unknown]
  - B-lymphocyte count abnormal [Unknown]
  - Vitamin B12 increased [Unknown]
  - Laboratory test abnormal [Unknown]
  - CD4 lymphocytes decreased [Unknown]
  - Ill-defined disorder [Unknown]
  - Escherichia urinary tract infection [Unknown]
  - Dysuria [Unknown]
  - Urinary tract infection [Unknown]
  - Pollakiuria [Unknown]
  - T-lymphocyte count abnormal [Unknown]
  - Urinary tract infection [Unknown]
  - Suprapubic pain [Unknown]

NARRATIVE: CASE EVENT DATE: 20170119
